FAERS Safety Report 14886468 (Version 2)
Quarter: 2018Q2

REPORT INFORMATION
  Report Type: Spontaneous
  Country: US (occurrence: US)
  Receive Date: 20180512
  Receipt Date: 20180607
  Transmission Date: 20180711
  Serious: Yes (Other)
  Sender: FDA-Public Use
  Company Number: US-009507513-1805USA004786

PATIENT
  Age: 68 Year
  Sex: Male

DRUGS (1)
  1. KEYTRUDA [Suspect]
     Active Substance: PEMBROLIZUMAB
     Indication: OESOPHAGEAL ADENOCARCINOMA
     Dosage: 2 MG/KG EVERY 3 WK

REACTIONS (4)
  - Product use in unapproved indication [Unknown]
  - Autoimmune myocarditis [Unknown]
  - Myopathy [Recovering/Resolving]
  - Lymphocytic hypophysitis [Unknown]
